FAERS Safety Report 5982138-0 (Version None)
Quarter: 2008Q4

REPORT INFORMATION
  Report Type: 
  Country: None (occurrence: None)
  Receive Date: 20081203
  Receipt Date: 20081118
  Transmission Date: 20090506
  Serious: Yes (Death, Other)
  Sender: FDA-Public Use
  Company Number: A-US2008-22762

PATIENT
  Age: 51 Year
  Sex: Female

DRUGS (4)
  1. VENTAVIS [Suspect]
     Indication: PULMONARY HYPERTENSION
     Dosage: 2.5 UG, 6 X DAY
     Route: 055
     Dates: start: 20081107, end: 20081108
  2. REVATIO (SILDENAFIL CIRATE) [Concomitant]
  3. COUMADIN [Concomitant]
  4. LASIX [Concomitant]

REACTIONS (6)
  - CEREBRAL HAEMORRHAGE [None]
  - COUGH [None]
  - DRUG INTERACTION [None]
  - OROPHARYNGEAL PAIN [None]
  - SUBDURAL HAEMATOMA [None]
  - THROAT IRRITATION [None]
